FAERS Safety Report 25150226 (Version 2)
Quarter: 2025Q2

REPORT INFORMATION
  Report Type: Spontaneous
  Country: KR (occurrence: KR)
  Receive Date: 20250402
  Receipt Date: 20250408
  Transmission Date: 20250717
  Serious: Yes (Hospitalization, Other)
  Sender: PFIZER
  Company Number: KR-MLMSERVICE-20250321-PI454593-00270-1

PATIENT
  Age: 41 Year
  Sex: Male
  Weight: 90 kg

DRUGS (1)
  1. METHYLPREDNISOLONE ACETATE [Suspect]
     Active Substance: METHYLPREDNISOLONE ACETATE
     Indication: Spinal cord injury
     Route: 042

REACTIONS (3)
  - Herpes zoster disseminated [Recovering/Resolving]
  - Off label use [Unknown]
  - Off label use [Unknown]
